FAERS Safety Report 8388379-X (Version None)
Quarter: 2012Q2

REPORT INFORMATION
  Report Type: 
  Country: None (occurrence: None)
  Receive Date: 20120525
  Receipt Date: 20120514
  Transmission Date: 20120825
  Serious: Yes (Other)
  Sender: FDA-Public Use
  Company Number: FI-ELI_LILLY_AND_COMPANY-FI201204009130

PATIENT
  Age: 58 Year
  Sex: Female

DRUGS (4)
  1. ESTROFEM [Concomitant]
     Dosage: 1 MG, QD
     Route: 048
  2. CYMBALTA [Suspect]
     Indication: DEPRESSION
     Dosage: 60 MG, UNK
     Dates: start: 20111025
  3. CYMBALTA [Suspect]
     Dosage: 30 MG, UNK
  4. ORLOC [Concomitant]
     Dosage: 2.5 MG, QD

REACTIONS (2)
  - BLOOD PRESSURE DECREASED [None]
  - DRUG INTERACTION [None]
